FAERS Safety Report 9757869 (Version 1)
Quarter: 2013Q4

REPORT INFORMATION
  Report Type: Spontaneous
  Country: GB (occurrence: GB)
  Receive Date: 20131216
  Receipt Date: 20131216
  Transmission Date: 20140711
  Serious: Yes (Other)
  Sender: FDA-Public Use
  Company Number: GB-RANBAXY-2013R1-75905

PATIENT
  Age: 33 Year
  Sex: Female
  Weight: 57.6 kg

DRUGS (2)
  1. ISOTRETINOIN [Suspect]
     Indication: ACNE
     Dosage: 40 MG, QD
     Route: 048
     Dates: start: 20130522, end: 20131023
  2. MIRENA [Concomitant]
     Indication: CONTRACEPTION
     Dosage: UNK
     Route: 065
     Dates: start: 2005

REACTIONS (4)
  - Memory impairment [Recovered/Resolved]
  - Personality change [Recovered/Resolved]
  - Tearfulness [Recovered/Resolved]
  - Depressed mood [Recovered/Resolved]
